FAERS Safety Report 14687382 (Version 1)
Quarter: 2018Q1

REPORT INFORMATION
  Report Type: Spontaneous
  Country: ES (occurrence: ES)
  Receive Date: 20180328
  Receipt Date: 20180328
  Transmission Date: 20180509
  Serious: Yes (Death, Hospitalization)
  Sender: FDA-Public Use
  Company Number: ES-CIPLA LTD.-2018ES12679

PATIENT

DRUGS (5)
  1. ALCOHOL. [Suspect]
     Active Substance: ALCOHOL
     Indication: PRODUCT USED FOR UNKNOWN INDICATION
     Dosage: UNK
     Route: 048
  2. CITALOPRAM [Suspect]
     Active Substance: CITALOPRAM HYDROBROMIDE
     Indication: DEPRESSION
     Dosage: 20 MG, DAILY
     Route: 065
  3. CITALOPRAM [Suspect]
     Active Substance: CITALOPRAM HYDROBROMIDE
     Dosage: 480 MG, UNK
     Route: 048
  4. RED BULL [Suspect]
     Active Substance: DIETARY SUPPLEMENT
     Indication: PRODUCT USED FOR UNKNOWN INDICATION
     Dosage: UNK, ONE OR TWO LITRES
     Route: 065
  5. TRYPTOPHAN                         /00215101/ [Suspect]
     Active Substance: TRYPTOPHAN
     Indication: SUPPLEMENTATION THERAPY
     Dosage: 600 MG, DAILY
     Route: 065

REACTIONS (13)
  - Hypoglycaemia [Unknown]
  - Suicide attempt [Unknown]
  - Serotonin syndrome [Fatal]
  - Acute respiratory failure [Unknown]
  - Acute kidney injury [Unknown]
  - Multiple organ dysfunction syndrome [Unknown]
  - Toxicity to various agents [Unknown]
  - Intentional overdose [Unknown]
  - Shock [Unknown]
  - Lactic acidosis [Unknown]
  - Disseminated intravascular coagulation [Unknown]
  - Leukopenia [Unknown]
  - Rhabdomyolysis [Unknown]
